FAERS Safety Report 8183423-7 (Version None)
Quarter: 2012Q1

REPORT INFORMATION
  Report Type: 
  Country: None (occurrence: None)
  Receive Date: 20120305
  Receipt Date: 20120224
  Transmission Date: 20120608
  Serious: Yes (Life-Threatening, Hospitalization)
  Sender: FDA-Public Use
  Company Number: ES-COVIDIEN/TYCO HEALTHCARE/MALLINCKRODT-T201200777

PATIENT
  Sex: Male

DRUGS (6)
  1. FERROUS SULFATE TAB [Concomitant]
  2. OPTIRAY 160 [Suspect]
     Indication: COMPUTERISED TOMOGRAM
     Dosage: 120 ML, SINGLE
     Route: 042
     Dates: start: 20090630, end: 20090630
  3. OMEPRAZOLE [Concomitant]
  4. UROLOSIN [Concomitant]
  5. ACFOL [Concomitant]
  6. OPTOVIT-E [Concomitant]

REACTIONS (4)
  - HYPOTENSION [None]
  - ATRIAL FIBRILLATION [None]
  - LOSS OF CONSCIOUSNESS [None]
  - PRURITUS GENERALISED [None]
